FAERS Safety Report 15594467 (Version 2)
Quarter: 2019Q1

REPORT INFORMATION
  Report Type: Spontaneous
  Country: US (occurrence: US)
  Receive Date: 20181107
  Receipt Date: 20190206
  Transmission Date: 20190417
  Serious: Yes (Other)
  Sender: FDA-Public Use
  Company Number: US-009507513-1811USA000264

PATIENT
  Sex: Male

DRUGS (3)
  1. PHILLIPS LAXATIVE CAPLETS [Concomitant]
  2. OXYCODONE [Concomitant]
     Active Substance: OXYCODONE
  3. SYLATRON [Suspect]
     Active Substance: PEGINTERFERON ALFA-2B
     Indication: MALIGNANT MELANOMA
     Dosage: 300 MICROGRAM, Q, UNDER THE SKIN

REACTIONS (1)
  - Malignant melanoma [Unknown]
